FAERS Safety Report 4844030-4 (Version None)
Quarter: 2005Q4

REPORT INFORMATION
  Report Type: 
  Country: None (occurrence: None)
  Receive Date: 20051202
  Receipt Date: 20051121
  Transmission Date: 20060501
  Serious: Yes (Hospitalization)
  Sender: FDA-Public Use
  Company Number: US-MERCK-0511USA03745

PATIENT
  Age: 63 Year
  Sex: Female
  Weight: 114 kg

DRUGS (4)
  1. VIOXX [Suspect]
     Indication: PAIN
     Route: 048
     Dates: start: 20010101, end: 20010101
  2. COZAAR [Concomitant]
     Route: 048
  3. GLUCOPHAGE [Suspect]
     Route: 065
  4. INDOCIN [Suspect]
     Route: 048

REACTIONS (28)
  - ANGINA PECTORIS [None]
  - AZOTAEMIA [None]
  - BLOOD MAGNESIUM DECREASED [None]
  - BRAIN NATRIURETIC PEPTIDE INCREASED [None]
  - CARDIAC FAILURE CONGESTIVE [None]
  - CARDIAC MURMUR [None]
  - COGNITIVE DISORDER [None]
  - CORONARY ARTERY DISEASE [None]
  - CORONARY ARTERY OCCLUSION [None]
  - DIABETES MELLITUS [None]
  - ESCHERICHIA URINARY TRACT INFECTION [None]
  - GOUTY ARTHRITIS [None]
  - HYPERLIPIDAEMIA [None]
  - HYPERTENSION [None]
  - MITRAL VALVE CALCIFICATION [None]
  - MITRAL VALVE INCOMPETENCE [None]
  - PERIPHERAL VASCULAR DISORDER [None]
  - RADICULITIS CERVICAL [None]
  - RENAL FAILURE ACUTE [None]
  - RENAL FAILURE CHRONIC [None]
  - RESPIRATORY TRACT INFECTION [None]
  - SKIN HYPERPIGMENTATION [None]
  - SMALL CELL LUNG CANCER STAGE UNSPECIFIED [None]
  - STOMACH DISCOMFORT [None]
  - STREPTOCOCCAL INFECTION [None]
  - THROMBOCYTOPENIA [None]
  - URINARY TRACT INFECTION [None]
  - VENTRICULAR EXTRASYSTOLES [None]
